FAERS Safety Report 9744077 (Version 1)
Quarter: 2013Q4

REPORT INFORMATION
  Report Type: Report from Study
  Country: TR (occurrence: TR)
  Receive Date: 20131210
  Receipt Date: 20131210
  Transmission Date: 20140711
  Serious: Yes (Death)
  Sender: FDA-Public Use
  Company Number: TR-GLAXOSMITHKLINE-B0950282A

PATIENT
  Sex: Female
  Weight: 75 kg

DRUGS (7)
  1. RYTMONORM [Suspect]
     Indication: PRODUCT USED FOR UNKNOWN INDICATION
     Dosage: 150MG TWICE PER DAY
     Route: 048
  2. ASPIRIN [Suspect]
     Indication: PRODUCT USED FOR UNKNOWN INDICATION
     Route: 065
  3. CORDARONE [Suspect]
     Indication: PRODUCT USED FOR UNKNOWN INDICATION
     Route: 065
  4. BELOC [Suspect]
     Indication: PRODUCT USED FOR UNKNOWN INDICATION
     Route: 065
  5. BETA BLOCKER [Concomitant]
     Indication: CARDIAC FAILURE
  6. ASPIRIN [Concomitant]
     Indication: CARDIAC FAILURE
  7. PROTON PUMP INHIBITOR [Concomitant]
     Indication: PEPTIC ULCER

REACTIONS (2)
  - Death [Fatal]
  - Drug interaction [Fatal]
